FAERS Safety Report 6267542-8 (Version None)
Quarter: 2009Q3

REPORT INFORMATION
  Report Type: 
  Country: None (occurrence: None)
  Receive Date: 20090714
  Receipt Date: 20090706
  Transmission Date: 20100115
  Serious: Yes (Other)
  Sender: FDA-Public Use
  Company Number: US-MERCK-0806USA03821

PATIENT
  Age: 76 Year
  Sex: Female

DRUGS (3)
  1. FOSAMAX [Suspect]
     Indication: OSTEOPOROSIS
     Route: 048
     Dates: start: 19990101, end: 20060101
  2. FOSAMAX [Suspect]
     Route: 048
     Dates: start: 19910401, end: 19990101
  3. ACTONEL [Suspect]
     Route: 065

REACTIONS (38)
  - ABDOMINAL DISCOMFORT [None]
  - ADVERSE DRUG REACTION [None]
  - AMNESIA [None]
  - ANXIETY [None]
  - ASTHENIA [None]
  - BREATH ODOUR [None]
  - BRUXISM [None]
  - DEPRESSION [None]
  - DIZZINESS [None]
  - DRUG HYPERSENSITIVITY [None]
  - DYSPHONIA [None]
  - ESSENTIAL HYPERTENSION [None]
  - EXOSTOSIS [None]
  - FALL [None]
  - FATIGUE [None]
  - FISTULA DISCHARGE [None]
  - HEADACHE [None]
  - HYPERCHOLESTEROLAEMIA [None]
  - HYPERLIPIDAEMIA [None]
  - HYPERSENSITIVITY [None]
  - IMPAIRED HEALING [None]
  - MIGRAINE [None]
  - MULTIPLE ALLERGIES [None]
  - MUSCLE SPASMS [None]
  - NAUSEA [None]
  - ORAL CANDIDIASIS [None]
  - ORAL TORUS [None]
  - OSTEOMYELITIS [None]
  - OSTEONECROSIS [None]
  - RESPIRATORY ARREST [None]
  - RESPIRATORY DISORDER [None]
  - SKIN LACERATION [None]
  - SKIN LESION [None]
  - TEMPOROMANDIBULAR JOINT SYNDROME [None]
  - VERTIGO [None]
  - VISION BLURRED [None]
  - VITAMIN B12 DEFICIENCY [None]
  - WEIGHT DECREASED [None]
